FAERS Safety Report 8544756-5 (Version None)
Quarter: 2012Q3

REPORT INFORMATION
  Report Type: 
  Country: None (occurrence: None)
  Receive Date: 20120727
  Receipt Date: 20120725
  Transmission Date: 20120928
  Serious: Yes (Death)
  Sender: FDA-Public Use
  Company Number: US-ROCHE-1087508

PATIENT
  Sex: Male

DRUGS (1)
  1. XELODA [Suspect]
     Indication: NEOPLASM MALIGNANT
     Dosage: RECEIVED FOR 14 DAYS WITH 7 DAY OFF
     Route: 065
     Dates: start: 20100630, end: 20111106

REACTIONS (1)
  - NEOPLASM MALIGNANT [None]
